FAERS Safety Report 4623495-7 (Version None)
Quarter: 2005Q1

REPORT INFORMATION
  Report Type: 
  Country: None (occurrence: None)
  Receive Date: 20050330
  Receipt Date: 20050310
  Transmission Date: 20050727
  Serious: Yes (Hospitalization)
  Sender: FDA-Public Use
  Company Number: DE-YAMANOUCHI-YEHQ20050333

PATIENT
  Sex: Female

DRUGS (1)
  1. VESIKUR [Suspect]

REACTIONS (1)
  - LIVER FUNCTION TEST ABNORMAL [None]
